FAERS Safety Report 7933147-3 (Version None)
Quarter: 2011Q4

REPORT INFORMATION
  Report Type: 
  Country: None (occurrence: None)
  Receive Date: 20111122
  Receipt Date: 20111113
  Transmission Date: 20120403
  Serious: Yes (Hospitalization)
  Sender: FDA-Public Use
  Company Number: PHEH2011US009558

PATIENT
  Sex: Male

DRUGS (2)
  1. CLOZARIL [Suspect]
     Indication: PSYCHOTIC DISORDER
     Dosage: 200 MG, QHS
     Route: 048
     Dates: start: 20110603, end: 20111009
  2. DEPAKOTE [Concomitant]

REACTIONS (1)
  - PULMONARY EMBOLISM [None]
